FAERS Safety Report 9212875 (Version 1)
Quarter: 2013Q2

REPORT INFORMATION
  Report Type: Spontaneous
  Country: FR (occurrence: FR)
  Receive Date: 20130405
  Receipt Date: 20130405
  Transmission Date: 20140414
  Serious: Yes (Hospitalization, Other)
  Sender: FDA-Public Use
  Company Number: FR-009507513-1303FRA014356

PATIENT
  Age: 64 Year
  Sex: Male

DRUGS (16)
  1. INVANZ [Suspect]
     Indication: KLEBSIELLA INFECTION
     Dosage: 1 G, QD
     Route: 042
     Dates: start: 20130212, end: 20130306
  2. INVANZ [Suspect]
     Indication: PROSTATITIS
  3. TOPALGIC (TRAMADOL HYDROCHLORIDE) [Suspect]
     Indication: MUSCULOSKELETAL PAIN
     Dosage: 1 DF, QD
     Route: 048
     Dates: start: 20130207, end: 20130303
  4. TOPALGIC (TRAMADOL HYDROCHLORIDE) [Suspect]
     Indication: MUSCULOSKELETAL PAIN
     Dosage: 2 DF, QD
     Route: 048
     Dates: start: 20130207, end: 20130303
  5. LIORESAL [Suspect]
     Indication: MUSCLE SPASMS
     Dosage: 1 DF, TID
     Route: 048
     Dates: end: 20130302
  6. DIFFU-K [Concomitant]
     Dosage: 2 DF, BID
     Route: 048
  7. FORLAX [Concomitant]
     Dosage: UNK UNK, UNKNOWN
     Route: 048
  8. INEXIUM [Concomitant]
     Dosage: 1 DF, QD
     Route: 048
  9. LASILIX [Concomitant]
     Dosage: 1 DF, QD
     Route: 048
  10. SPIRIVA [Concomitant]
     Dosage: UNK
     Route: 055
  11. STILNOX [Concomitant]
     Dosage: UNK
     Route: 048
  12. SYMBICORT TURBUHALER [Concomitant]
     Dosage: 1 DF, BID
     Route: 055
  13. LOVENOX [Concomitant]
     Dosage: 1 DF, QD
     Route: 058
  14. ACUPAN [Concomitant]
     Dosage: UNK, PRN
     Route: 042
  15. THIAMINE [Concomitant]
     Dosage: UNK
     Route: 048
  16. PYRIDOXINE [Concomitant]
     Dosage: UNK
     Route: 048

REACTIONS (1)
  - Status epilepticus [Recovered/Resolved]
